FAERS Safety Report 21538746 (Version 1)
Quarter: 2022Q4

REPORT INFORMATION
  Report Type: Report from Study
  Country: US (occurrence: None)
  Receive Date: 20221102
  Receipt Date: 20221102
  Transmission Date: 20230113
  Serious: No
  Sender: FDA-Public Use
  Company Number: US-ABBVIE-22K-163-4256279-00

PATIENT
  Age: 21 Year
  Sex: Female

DRUGS (2)
  1. HUMIRA [Suspect]
     Active Substance: ADALIMUMAB
     Indication: Crohn^s disease
     Dosage: TIME INTERVAL: 1 TOTAL: DAY 1
     Route: 058
     Dates: start: 20211229, end: 20211229
  2. HUMIRA [Suspect]
     Active Substance: ADALIMUMAB
     Dosage: TIME INTERVAL: 1 TOTAL
     Route: 058
     Dates: start: 20220119, end: 20220119

REACTIONS (23)
  - Crohn^s disease [Unknown]
  - Feeling abnormal [Not Recovered/Not Resolved]
  - Loss of personal independence in daily activities [Recovering/Resolving]
  - Fatigue [Unknown]
  - Constipation [Not Recovered/Not Resolved]
  - Gastrointestinal sounds abnormal [Recovering/Resolving]
  - Fear [Unknown]
  - Frequent bowel movements [Unknown]
  - Asthenia [Not Recovered/Not Resolved]
  - Flatulence [Recovering/Resolving]
  - Stress [Unknown]
  - Insomnia [Unknown]
  - Anxiety [Unknown]
  - Abdominal distension [Recovering/Resolving]
  - COVID-19 [Unknown]
  - Injection site pain [Unknown]
  - Arthralgia [Unknown]
  - Back pain [Unknown]
  - Nausea [Recovering/Resolving]
  - Crohn^s disease [Recovered/Resolved]
  - Frequent bowel movements [Unknown]
  - Nasopharyngitis [Not Recovered/Not Resolved]
  - Gastrointestinal sounds abnormal [Unknown]

NARRATIVE: CASE EVENT DATE: 20211201
